FAERS Safety Report 13007562 (Version 1)
Quarter: 2016Q4

REPORT INFORMATION
  Report Type: Spontaneous
  Country: CY (occurrence: CY)
  Receive Date: 20161207
  Receipt Date: 20161207
  Transmission Date: 20170207
  Serious: Yes (Hospitalization)
  Sender: FDA-Public Use
  Company Number: CY-ALLERGAN-1679487US

PATIENT
  Age: 65 Year
  Sex: Male

DRUGS (1)
  1. SILODOSIN - BP [Suspect]
     Active Substance: SILODOSIN
     Indication: BENIGN PROSTATIC HYPERPLASIA
     Dosage: 8 MG, QD
     Route: 048

REACTIONS (2)
  - Syncope [Recovered/Resolved]
  - Loss of consciousness [Recovered/Resolved]
